FAERS Safety Report 8205367-4 (Version None)
Quarter: 2012Q1

REPORT INFORMATION
  Report Type: 
  Country: None (occurrence: None)
  Receive Date: 20120313
  Receipt Date: 20120306
  Transmission Date: 20120608
  Serious: Yes (Other)
  Sender: FDA-Public Use
  Company Number: US-VERTEX PHARMACEUTICALS INC.-AE-2012-001648

PATIENT
  Sex: Male
  Weight: 81.72 kg

DRUGS (8)
  1. PEGASYS [Concomitant]
     Indication: HEPATITIS C
     Route: 058
     Dates: start: 20111221, end: 20120229
  2. GLIPIZIDE [Concomitant]
     Indication: DIABETES MELLITUS
     Route: 048
  3. INCIVEK [Suspect]
     Indication: HEPATITIS C
     Route: 048
     Dates: start: 20111221, end: 20120301
  4. ZOLOFT [Concomitant]
     Indication: DEPRESSION
     Route: 048
  5. METFORMIN HYDROCHLORIDE [Concomitant]
     Indication: DIABETES MELLITUS
     Route: 048
  6. COPEGUS [Concomitant]
     Indication: HEPATITIS C
     Route: 048
     Dates: start: 20111221, end: 20120301
  7. LISINOPRIL [Concomitant]
     Indication: HYPERTENSION
     Route: 048
  8. ABILIFY [Concomitant]
     Indication: BIPOLAR I DISORDER
     Route: 048

REACTIONS (8)
  - SKIN EXFOLIATION [None]
  - RASH PRURITIC [None]
  - NAUSEA [None]
  - WEIGHT DECREASED [None]
  - HEADACHE [None]
  - VOMITING [None]
  - BLOOD GLUCOSE INCREASED [None]
  - DECREASED APPETITE [None]
